FAERS Safety Report 4449206-6 (Version None)
Quarter: 2004Q3

REPORT INFORMATION
  Report Type: 
  Country: None (occurrence: None)
  Receive Date: 20040910
  Receipt Date: 20040826
  Transmission Date: 20050211
  Serious: No
  Sender: FDA-Public Use
  Company Number: 04P-056-0271611-00

PATIENT
  Age: 10 Year
  Sex: Female

DRUGS (1)
  1. MICROPAKINE (SODIUM VALPROATE) (SODIUM VALPROATE) (SODIUM VALPROATE) [Suspect]
     Indication: EPILEPSY
     Dosage: 500 MG, 2 IN 1 D, PER ORAL
     Route: 048
     Dates: start: 20040601

REACTIONS (3)
  - CONDITION AGGRAVATED [None]
  - DRUG INEFFECTIVE [None]
  - EPILEPSY [None]
